FAERS Safety Report 9515731 (Version 1)
Quarter: 2013Q3

REPORT INFORMATION
  Report Type: Spontaneous
  Country: BR (occurrence: BR)
  Receive Date: 20130911
  Receipt Date: 20130911
  Transmission Date: 20140515
  Serious: Yes (Other)
  Sender: FDA-Public Use
  Company Number: BR-PFIZER INC-2013258307

PATIENT
  Age: 64 Year
  Sex: Female
  Weight: 55.5 kg

DRUGS (3)
  1. FRONTAL [Suspect]
     Indication: ANTIDEPRESSANT THERAPY
     Dosage: 1 MG, 1X/DAY
     Dates: start: 2010
  2. ALDACTONE [Suspect]
     Indication: DIURETIC THERAPY
     Dosage: 25 MG, 1X/DAY
     Dates: start: 2006
  3. CITALOPRAM [Concomitant]
     Indication: ANTIDEPRESSANT THERAPY
     Dosage: UNK
     Dates: start: 2008

REACTIONS (9)
  - Cataract [Unknown]
  - Corneal disorder [Unknown]
  - Keratitis [Unknown]
  - Detached Descemet^s membrane [Unknown]
  - Blister [Unknown]
  - Eye irritation [Unknown]
  - Lacrimation increased [Unknown]
  - Bundle branch block left [Unknown]
  - Blood cholesterol increased [Not Recovered/Not Resolved]
